FAERS Safety Report 5056065-X (Version None)
Quarter: 2006Q2

REPORT INFORMATION
  Report Type: 
  Country: None (occurrence: None)
  Receive Date: 20060616
  Receipt Date: 20060301
  Transmission Date: 20061013
  Serious: No
  Sender: FDA-Public Use
  Company Number: 2006US000314

PATIENT
  Age: 69 Year
  Sex: Female
  Weight: 77.6 kg

DRUGS (1)
  1. VESICARE [Suspect]
     Dosage: UID/QD,ORAL
     Route: 048
     Dates: end: 20060129

REACTIONS (1)
  - DERMATITIS ALLERGIC [None]
